FAERS Safety Report 9866913 (Version 1)
Quarter: 2014Q1

REPORT INFORMATION
  Report Type: Spontaneous
  Country: US (occurrence: None)
  Receive Date: 20140203
  Receipt Date: 20140203
  Transmission Date: 20141002
  Serious: No
  Sender: FDA-Public Use
  Company Number: None

PATIENT
  Age: 37 Year
  Sex: Female
  Weight: 71.67 kg

DRUGS (2)
  1. BUPROPION [Suspect]
     Indication: DEPRESSION
     Route: 048
  2. BUPROPION [Suspect]
     Indication: WEIGHT DECREASED
     Route: 048

REACTIONS (1)
  - Alopecia [None]
